FAERS Safety Report 5823535-3 (Version None)
Quarter: 2008Q3

REPORT INFORMATION
  Report Type: 
  Country: None (occurrence: None)
  Receive Date: 20080725
  Receipt Date: 20080718
  Transmission Date: 20090109
  Serious: Yes (Life-Threatening, Hospitalization)
  Sender: FDA-Public Use
  Company Number: US-GENENTECH-264280

PATIENT
  Sex: Male

DRUGS (14)
  1. BEVACIZUMAB [Suspect]
     Indication: NON-SMALL CELL LUNG CANCER
     Dosage: 15 MG/KG, Q21D
     Route: 042
     Dates: start: 20080409, end: 20080430
  2. ALIMTA [Suspect]
     Indication: NON-SMALL CELL LUNG CANCER
     Dosage: 500 MG/M2, Q21D
     Route: 042
     Dates: start: 20080409, end: 20080430
  3. CARBOPLATIN [Suspect]
     Indication: NON-SMALL CELL LUNG CANCER
     Dosage: 6 AUC, Q21D
     Route: 042
     Dates: start: 20080409, end: 20080430
  4. ENZASTAURIN OR PLACEBO [Suspect]
     Indication: NON-SMALL CELL LUNG CANCER
     Dosage: 3 TABLET, TID
     Route: 048
     Dates: start: 20080401
  5. ENZASTAURIN OR PLACEBO [Suspect]
     Dosage: 4 TABLET, QD
     Route: 048
     Dates: end: 20080521
  6. ADVICOR [Concomitant]
     Indication: DRUG USE FOR UNKNOWN INDICATION
  7. ASPIRIN [Concomitant]
     Indication: DRUG USE FOR UNKNOWN INDICATION
  8. FOLIC ACID [Concomitant]
     Indication: DRUG USE FOR UNKNOWN INDICATION
     Dosage: UNK
     Dates: start: 20080401
  9. METOPROLOL TARTRATE [Concomitant]
     Indication: DRUG USE FOR UNKNOWN INDICATION
  10. NITROGLYCERIN [Concomitant]
     Indication: DRUG USE FOR UNKNOWN INDICATION
  11. OXYCODONE HCL [Concomitant]
     Indication: DRUG USE FOR UNKNOWN INDICATION
  12. TYLENOL [Concomitant]
     Indication: DRUG USE FOR UNKNOWN INDICATION
  13. VITAMIN B-12 [Concomitant]
     Indication: DRUG USE FOR UNKNOWN INDICATION
     Dosage: UNK
     Dates: start: 20080331, end: 20080331
  14. WARFARIN SODIUM [Concomitant]
     Indication: DRUG USE FOR UNKNOWN INDICATION
     Dosage: UNK
     Dates: start: 20080521

REACTIONS (8)
  - ABDOMINAL ABSCESS [None]
  - COLONIC STENOSIS [None]
  - DIVERTICULITIS [None]
  - GASTROINTESTINAL NECROSIS [None]
  - ILEUS [None]
  - INTESTINAL OBSTRUCTION [None]
  - INTESTINAL PERFORATION [None]
  - PERITONITIS [None]
